FAERS Safety Report 4864383-0 (Version None)
Quarter: 2005Q4

REPORT INFORMATION
  Report Type: 
  Country: None (occurrence: None)
  Receive Date: 20051222
  Receipt Date: 20051115
  Transmission Date: 20060501
  Serious: Yes (Other)
  Sender: FDA-Public Use
  Company Number: JP-BRISTOL-MYERS SQUIBB COMPANY-13224977

PATIENT
  Age: 45 Year
  Sex: Male

DRUGS (1)
  1. EFAVIRENZ [Suspect]
     Indication: HIV INFECTION
     Route: 048
     Dates: start: 20030601

REACTIONS (2)
  - HEPATIC FUNCTION ABNORMAL [None]
  - LACTIC ACIDOSIS [None]
